FAERS Safety Report 8817158 (Version 4)
Quarter: 2013Q1

REPORT INFORMATION
  Report Type: Spontaneous
  Country: None (occurrence: None)
  Receive Date: 20121002
  Receipt Date: 20130125
  Transmission Date: 20140127
  Serious: Yes (Other)
  Sender: FDA-Public Use
  Company Number: AUR-APL-2012-04144

PATIENT
  Sex: Male
  Weight: 107.9 kg

DRUGS (2)
  1. SIMVASTATIN [Suspect]
     Indication: OVERWEIGHT
     Route: 048
     Dates: start: 20120610, end: 20120912
  2. CLOPIDOGREL [Suspect]
     Indication: OVERWEIGHT
     Route: 048
     Dates: start: 20120610, end: 20120912

REACTIONS (3)
  - Neuropathy peripheral [None]
  - Erectile dysfunction [None]
  - Tinnitus [None]
